FAERS Safety Report 9026348 (Version 1)
Quarter: 2012Q4

REPORT INFORMATION
  Report Type: Spontaneous
  Country: US (occurrence: None)
  Receive Date: 20121214
  Receipt Date: 20121214
  Transmission Date: 20130627
  Serious: Yes (Life-Threatening)
  Sender: FDA-Public Use
  Company Number: None

PATIENT
  Sex: Female
  Weight: 68.04 kg

DRUGS (1)
  1. MIRENA IUD [Suspect]
     Dates: start: 201106, end: 201205

REACTIONS (4)
  - Urinary tract infection [None]
  - Bacterial infection [None]
  - Pelvic inflammatory disease [None]
  - Back pain [None]
